FAERS Safety Report 6616281-X (Version None)
Quarter: 2010Q1

REPORT INFORMATION
  Report Type: 
  Country: None (occurrence: None)
  Receive Date: 20100305
  Receipt Date: 20100301
  Transmission Date: 20100710
  Serious: Yes (Death, Hospitalization)
  Sender: FDA-Public Use
  Company Number: MX-SANOFI-AVENTIS-2010SA010425

PATIENT
  Sex: Male

DRUGS (1)
  1. XATRAL OD [Suspect]
     Indication: BENIGN PROSTATIC HYPERPLASIA
     Route: 048
     Dates: start: 20100101, end: 20100101

REACTIONS (3)
  - HYPOTENSION [None]
  - SHOCK [None]
  - VASODILATATION [None]
